FAERS Safety Report 6302520-1 (Version None)
Quarter: 2009Q3

REPORT INFORMATION
  Report Type: 
  Country: None (occurrence: None)
  Receive Date: 20090810
  Receipt Date: 20090731
  Transmission Date: 20100115
  Serious: Yes (Other)
  Sender: FDA-Public Use
  Company Number: DE-ABBOTT-09P-062-0588977-00

PATIENT
  Sex: Female
  Weight: 52 kg

DRUGS (2)
  1. HUMIRA [Suspect]
     Indication: CROHN'S DISEASE
  2. METOCLOPRAMIDE [Concomitant]
     Indication: CROHN'S DISEASE
     Dates: start: 20000101

REACTIONS (1)
  - FEMALE GENITAL TRACT FISTULA [None]
